FAERS Safety Report 6521965-8 (Version None)
Quarter: 2009Q4

REPORT INFORMATION
  Report Type: 
  Country: None (occurrence: None)
  Receive Date: 20091229
  Receipt Date: 20091229
  Transmission Date: 20100525
  Serious: No
  Sender: FDA-Public Use
  Company Number: None

PATIENT
  Sex: Male

DRUGS (1)
  1. GENTAMICIN [Suspect]
     Indication: PROPHYLAXIS
     Dosage: 0.3% OU X 1
     Dates: start: 20091121

REACTIONS (1)
  - APPLICATION SITE DERMATITIS [None]
